FAERS Safety Report 7952934-9 (Version None)
Quarter: 2011Q4

REPORT INFORMATION
  Report Type: 
  Country: None (occurrence: None)
  Receive Date: 20111201
  Receipt Date: 20111121
  Transmission Date: 20120403
  Serious: Yes (Hospitalization, Other)
  Sender: FDA-Public Use
  Company Number: US-JNJFOC-20111013203

PATIENT
  Sex: Female
  Weight: 68.95 kg

DRUGS (8)
  1. REMICADE [Suspect]
     Indication: CROHN'S DISEASE
     Route: 042
     Dates: start: 20030820
  2. REMICADE [Suspect]
     Route: 042
     Dates: start: 20030804
  3. REMICADE [Suspect]
     Route: 042
  4. METHOTREXATE [Concomitant]
  5. REMICADE [Suspect]
     Route: 042
     Dates: start: 20030915
  6. AZATHIOPRINE [Concomitant]
  7. REMICADE [Suspect]
     Route: 042
     Dates: start: 20031112
  8. REMICADE [Suspect]
     Route: 042
     Dates: start: 20040108

REACTIONS (1)
  - BREAST CANCER [None]
